FAERS Safety Report 9821754 (Version 1)
Quarter: 2014Q1

REPORT INFORMATION
  Report Type: Spontaneous
  Country: TR (occurrence: TR)
  Receive Date: 20140116
  Receipt Date: 20140116
  Transmission Date: 20141002
  Serious: Yes (Hospitalization)
  Sender: FDA-Public Use
  Company Number: PHHY2014TR004560

PATIENT
  Age: 30 Year
  Sex: Male

DRUGS (4)
  1. CLOZAPINE [Suspect]
     Indication: SCHIZOPHRENIA, PARANOID TYPE
     Dosage: 600 MG, PER DAY
  2. CLOZAPINE [Suspect]
     Dates: start: 201002
  3. AMISULPRIDE [Suspect]
     Indication: HALLUCINATION
  4. HALOPERIDOL [Suspect]
     Indication: PSYCHOTIC DISORDER

REACTIONS (10)
  - Hallucination, visual [Unknown]
  - Hallucination, auditory [Unknown]
  - Persecutory delusion [Unknown]
  - Dysphoria [Unknown]
  - Anxiety [Unknown]
  - Akathisia [Unknown]
  - Muscle rigidity [Unknown]
  - Agranulocytosis [Unknown]
  - Neutropenia [Recovering/Resolving]
  - White blood cell count decreased [Unknown]
